FAERS Safety Report 5715572-4 (Version None)
Quarter: 2008Q2

REPORT INFORMATION
  Report Type: 
  Country: None (occurrence: None)
  Receive Date: 20080417
  Receipt Date: 20080401
  Transmission Date: 20081010
  Serious: Yes (Hospitalization)
  Sender: FDA-Public Use
  Company Number: 200813177

PATIENT
  Age: 39 Year
  Sex: Female
  Weight: 68.0396 kg

DRUGS (5)
  1. CARIMUNE [Suspect]
     Indication: IMMUNODEFICIENCY
     Dosage: 3.4 G ONCE IV
     Route: 042
     Dates: start: 20080326, end: 20080326
  2. CARIMUNE [Suspect]
     Indication: IMPAIRED HEALING
     Dosage: 3.4 G ONCE IV
     Route: 042
     Dates: start: 20080326, end: 20080326
  3. PROTONIX [Concomitant]
  4. PHENERGAN [Concomitant]
  5. VANCOMYCIN [Concomitant]

REACTIONS (8)
  - FATIGUE [None]
  - FLUSHING [None]
  - HEADACHE [None]
  - INFECTION [None]
  - PYREXIA [None]
  - TACHYCARDIA [None]
  - TACHYPNOEA [None]
  - VERTIGO [None]
